FAERS Safety Report 9061614 (Version 1)
Quarter: 2013Q1

REPORT INFORMATION
  Report Type: Report from Study
  Country: IT (occurrence: IT)
  Receive Date: 20130204
  Receipt Date: 20130204
  Transmission Date: 20140127
  Serious: Yes (Hospitalization)
  Sender: FDA-Public Use
  Company Number: PHHY2012IT024514

PATIENT
  Age: 38 Year
  Sex: Female

DRUGS (1)
  1. NEORAL [Suspect]
     Indication: PSORIASIS
     Dosage: 200 MG, DAILY
     Dates: start: 20111104, end: 20120305

REACTIONS (2)
  - Abortion [Unknown]
  - Exposure during pregnancy [Unknown]
